FAERS Safety Report 5823234-8 (Version None)
Quarter: 2008Q3

REPORT INFORMATION
  Report Type: 
  Country: None (occurrence: None)
  Receive Date: 20080725
  Receipt Date: 20080122
  Transmission Date: 20090109
  Serious: No
  Sender: FDA-Public Use
  Company Number: A0704610A

PATIENT
  Age: 74 Year
  Sex: Female

DRUGS (5)
  1. DYAZIDE [Suspect]
     Indication: HYPERTENSION
     Dosage: 37.5MG PER DAY
     Route: 048
     Dates: start: 20030101
  2. VERAPAMIL [Concomitant]
  3. ACTONEL [Concomitant]
  4. TOPROL-XL [Concomitant]
  5. COUMADIN [Concomitant]

REACTIONS (1)
  - HAIR GROWTH ABNORMAL [None]
